FAERS Safety Report 5072197-4 (Version None)
Quarter: 2006Q3

REPORT INFORMATION
  Report Type: 
  Country: None (occurrence: None)
  Receive Date: 20060807
  Receipt Date: 20060725
  Transmission Date: 20061208
  Serious: Yes (Other)
  Sender: FDA-Public Use
  Company Number: PHBS2006RU11594

PATIENT
  Age: 79 Year
  Sex: Female

DRUGS (3)
  1. ALFA-D3-TEVA [Concomitant]
     Dosage: 4 CAPSULES/DAY
     Route: 048
  2. MIACALCIN [Suspect]
     Indication: OSTEOPOROSIS
     Dosage: 200 IU/DAY
     Route: 045
     Dates: start: 20050101
  3. MIACALCIN [Suspect]
     Dosage: 200 IU/DAY
     Route: 045
     Dates: start: 20040101, end: 20050101

REACTIONS (2)
  - BODY HEIGHT DECREASED [None]
  - BONE DENSITY DECREASED [None]
